FAERS Safety Report 7622421-6 (Version None)
Quarter: 2011Q3

REPORT INFORMATION
  Report Type: 
  Country: None (occurrence: None)
  Receive Date: 20110711
  Receipt Date: 20110628
  Transmission Date: 20111222
  Serious: Yes (Other)
  Sender: FDA-Public Use
  Company Number: B0731123A

PATIENT
  Age: 21 Year
  Sex: Female

DRUGS (1)
  1. LAMOTRIGINE [Suspect]
     Indication: EPILEPSY

REACTIONS (1)
  - TOXIC EPIDERMAL NECROLYSIS [None]
